FAERS Safety Report 8992020 (Version 2)
Quarter: 2013Q1

REPORT INFORMATION
  Report Type: Spontaneous
  Country: DE (occurrence: DE)
  Receive Date: 20121231
  Receipt Date: 20130313
  Transmission Date: 20140127
  Serious: Yes (Other)
  Sender: FDA-Public Use
  Company Number: PHHY2012DE121118

PATIENT
  Age: 49 Year
  Sex: Female

DRUGS (3)
  1. GILENYA [Suspect]
     Indication: MULTIPLE SCLEROSIS
     Dosage: 0.5 MG, QD
     Route: 048
     Dates: start: 20101111
  2. EUTHYROX [Concomitant]
     Indication: HYPOTHYROIDISM
     Dosage: 75 UG, UNK
     Route: 048
     Dates: start: 2011
  3. SPASMEX [Concomitant]
     Indication: URINARY INCONTINENCE
     Dosage: 30 MG, UNK
     Route: 048
     Dates: start: 2008

REACTIONS (1)
  - Biliary cirrhosis primary [Recovering/Resolving]
